FAERS Safety Report 20101815 (Version 1)
Quarter: 2021Q4

REPORT INFORMATION
  Report Type: Spontaneous
  Country: US (occurrence: US)
  Receive Date: 20211123
  Receipt Date: 20211123
  Transmission Date: 20220303
  Serious: Yes (Other)
  Sender: FDA-Public Use
  Company Number: US-MLMSERVICE-20211104-3204647-1

PATIENT
  Age: 30 Year
  Sex: Male

DRUGS (4)
  1. BACTERIOSTATIC SODIUM CHLORIDE [Suspect]
     Active Substance: SODIUM CHLORIDE
     Dosage: FREQ:1 H; (100 CC/HR)
     Route: 042
  2. ACETAZOLAMIDE [Concomitant]
     Active Substance: ACETAZOLAMIDE
     Indication: Gastric pH decreased
     Dosage: UNK
     Route: 042
  3. POTASSIUM [Concomitant]
     Active Substance: POTASSIUM
     Indication: Gastric pH decreased
     Dosage: UNK
     Route: 042
  4. LASIX [Concomitant]
     Active Substance: FUROSEMIDE
     Dosage: 20 MG, DAILY

REACTIONS (1)
  - Hypernatraemia [Recovered/Resolved]
